FAERS Safety Report 8597739-3 (Version None)
Quarter: 2012Q3

REPORT INFORMATION
  Report Type: 
  Country: None (occurrence: None)
  Receive Date: 20120816
  Receipt Date: 20120809
  Transmission Date: 20120928
  Serious: Yes (Hospitalization)
  Sender: FDA-Public Use
  Company Number: PHHY2012JP058113

PATIENT
  Sex: Female
  Weight: 47 kg

DRUGS (9)
  1. OMEPRAZOLE [Concomitant]
     Dosage: 20 MG, UNK
     Route: 048
     Dates: start: 20120212
  2. TASIGNA [Suspect]
     Dosage: 300 MG, DAILY
     Route: 048
     Dates: start: 20120221, end: 20120405
  3. TASIGNA [Suspect]
     Indication: CHRONIC MYELOID LEUKAEMIA
     Dosage: 600 MG, DAILY
     Route: 048
     Dates: start: 20120110, end: 20120212
  4. PREDNISOLONE [Concomitant]
     Dosage: 15 MG, UNK
     Route: 048
  5. SULFAMETHOXAZOLE AND TRIMETHOPRIM [Concomitant]
     Indication: INFECTION PROPHYLAXIS
     Dosage: 1 DF, UNK
     Route: 048
     Dates: start: 20120301, end: 20120625
  6. OLOPATADINE HCL [Concomitant]
     Indication: RASH
     Dosage: 10 MG, UNK
     Route: 048
  7. ACETAMINOPHEN [Suspect]
     Indication: PYREXIA
     Dosage: 1200 MG, DAILY
     Route: 048
     Dates: start: 20120522, end: 20120612
  8. PREDNISOLONE [Concomitant]
     Dosage: 20 MG, UNK
     Dates: start: 20120423
  9. TASIGNA [Suspect]
     Dosage: 150 MG, DAILY
     Route: 048
     Dates: start: 20120425, end: 20120515

REACTIONS (8)
  - OEDEMA PERIPHERAL [None]
  - RENAL DISORDER [None]
  - RASH [None]
  - DRY MOUTH [None]
  - BLOOD CREATININE INCREASED [None]
  - HYPERKERATOSIS [None]
  - PYREXIA [None]
  - DYSGEUSIA [None]
